FAERS Safety Report 9788300 (Version 3)
Quarter: 2014Q2

REPORT INFORMATION
  Report Type: Spontaneous
  Country: US (occurrence: US)
  Receive Date: 20131230
  Receipt Date: 20140409
  Transmission Date: 20141212
  Serious: No
  Sender: FDA-Public Use
  Company Number: US-PFIZER INC-2013369305

PATIENT
  Age: 60 Year
  Sex: Male
  Weight: 95.24 kg

DRUGS (1)
  1. ADVIL [Suspect]
     Indication: HEADACHE
     Dosage: UNK

REACTIONS (3)
  - Poor quality drug administered [Unknown]
  - Drug ineffective [Unknown]
  - Product physical issue [Unknown]
